FAERS Safety Report 24651314 (Version 1)
Quarter: 2024Q4

REPORT INFORMATION
  Report Type: Spontaneous
  Country: SK (occurrence: SK)
  Receive Date: 20241122
  Receipt Date: 20241122
  Transmission Date: 20250114
  Serious: Yes (Other)
  Sender: ACCORD
  Company Number: SK-EMA-DD-20241021-7482650-130256

PATIENT
  Age: 63 Year
  Sex: Female

DRUGS (1)
  1. CAPECITABINE [Suspect]
     Active Substance: CAPECITABINE
     Indication: Breast cancer
     Dosage: 4 CYCLE.
     Dates: start: 201403

REACTIONS (3)
  - Peripheral artery thrombosis [Unknown]
  - Oedema peripheral [Unknown]
  - Deep vein thrombosis [Unknown]
